FAERS Safety Report 11916202 (Version 2)
Quarter: 2016Q1

REPORT INFORMATION
  Report Type: Spontaneous
  Country: CN (occurrence: CN)
  Receive Date: 20160114
  Receipt Date: 20160205
  Transmission Date: 20160526
  Serious: Yes (Other)
  Sender: FDA-Public Use
  Company Number: CN-GLAXOSMITHKLINE-CN2015184911

PATIENT
  Age: 27 Year
  Sex: Female
  Weight: 57 kg

DRUGS (4)
  1. EPIVIR [Suspect]
     Active Substance: LAMIVUDINE
     Dosage: 2 DF, QD
     Route: 048
     Dates: start: 201512
  2. VIREAD [Suspect]
     Active Substance: TENOFOVIR DISOPROXIL FUMARATE
     Indication: PROPHYLAXIS AGAINST HIV INFECTION
     Dosage: 300 MG, BID
     Route: 048
     Dates: start: 201512
  3. EPIVIR [Suspect]
     Active Substance: LAMIVUDINE
     Indication: PROPHYLAXIS AGAINST HIV INFECTION
     Dosage: 2 DF, QD
     Route: 048
     Dates: start: 201512
  4. VIREAD [Suspect]
     Active Substance: TENOFOVIR DISOPROXIL FUMARATE
     Dosage: 300 MG, BID
     Route: 048
     Dates: start: 201512

REACTIONS (11)
  - Off label use [Unknown]
  - Waist circumference increased [Recovering/Resolving]
  - Unevaluable event [Recovering/Resolving]
  - Amnesia [Unknown]
  - Menstruation delayed [Recovered/Resolved]
  - Overdose [Recovered/Resolved]
  - Slow response to stimuli [Unknown]
  - Renal pain [Recovered/Resolved]
  - Localised oedema [Recovered/Resolved]
  - Prescription drug used without a prescription [Recovered/Resolved]
  - Pain [Recovered/Resolved]

NARRATIVE: CASE EVENT DATE: 201512
